FAERS Safety Report 5938334-1 (Version None)
Quarter: 2008Q4

REPORT INFORMATION
  Report Type: 
  Country: None (occurrence: None)
  Receive Date: 20081103
  Receipt Date: 20081022
  Transmission Date: 20090506
  Serious: No
  Sender: FDA-Public Use
  Company Number: JP-JNJFOC-20081004190

PATIENT
  Sex: Male

DRUGS (5)
  1. TOPINA [Suspect]
     Route: 048
  2. TOPINA [Suspect]
     Route: 048
  3. TOPINA [Suspect]
     Route: 048
  4. TOPINA [Suspect]
     Indication: EPILEPSY
     Route: 048
  5. ZONEGRAN [Concomitant]
     Indication: EPILEPSY
     Route: 048

REACTIONS (3)
  - DENTAL CARIES [None]
  - GINGIVITIS [None]
  - HYPOHIDROSIS [None]
